FAERS Safety Report 7445190-1 (Version None)
Quarter: 2011Q2

REPORT INFORMATION
  Report Type: 
  Country: None (occurrence: None)
  Receive Date: 20110429
  Receipt Date: 20110428
  Transmission Date: 20111010
  Serious: Yes (Death)
  Sender: FDA-Public Use
  Company Number: TR-PFIZER INC-2011088317

PATIENT
  Age: 22 Year
  Sex: Male

DRUGS (4)
  1. MEROPENEM [Concomitant]
     Dosage: 1 DF, 3X/DAY
     Route: 042
     Dates: start: 20100824
  2. TARGOCID [Concomitant]
     Dosage: 400 MG, 1X/DAY
     Route: 042
     Dates: start: 20100824
  3. CANCIDAS [Concomitant]
     Dosage: 50 MG, 1X/DAY
     Route: 042
     Dates: start: 20100827
  4. TAZOCIN [Suspect]
     Dosage: 4.5 G, 3X/DAY
     Route: 042
     Dates: start: 20100819, end: 20100824

REACTIONS (1)
  - DEATH [None]
